FAERS Safety Report 15653532 (Version 2)
Quarter: 2019Q2

REPORT INFORMATION
  Report Type: Report from Study
  Country: US (occurrence: US)
  Receive Date: 20181124
  Receipt Date: 20190426
  Transmission Date: 20190711
  Serious: Yes (Hospitalization)
  Sender: FDA-Public Use
  Company Number: US-ROCHE-2170275

PATIENT
  Age: 68 Year
  Sex: Female
  Weight: 91.25 kg

DRUGS (23)
  1. ESBRIET [Suspect]
     Active Substance: PIRFENIDONE
     Dosage: ONGOING: YES
     Route: 048
     Dates: start: 201610
  2. ESBRIET [Suspect]
     Active Substance: PIRFENIDONE
     Dosage: THREE PILLS THREE TIMES A DAY
     Route: 048
     Dates: start: 201808
  3. PREDNISONE. [Concomitant]
     Active Substance: PREDNISONE
     Indication: IDIOPATHIC PULMONARY FIBROSIS
  4. LASIX [Concomitant]
     Active Substance: FUROSEMIDE
     Route: 048
     Dates: start: 2018
  5. PROCHLORPERAZINE. [Concomitant]
     Active Substance: PROCHLORPERAZINE
     Route: 065
  6. SALINE NASAL MIST [Concomitant]
     Route: 065
  7. ESBRIET [Suspect]
     Active Substance: PIRFENIDONE
     Indication: PULMONARY HYPERTENSION
     Dosage: 2 TABS X 1 WEEKS
     Route: 048
     Dates: start: 20180821
  8. MECLIZINE HCL [Concomitant]
     Active Substance: MECLIZINE HYDROCHLORIDE
     Route: 065
  9. NYSTATIN. [Concomitant]
     Active Substance: NYSTATIN
     Dosage: 100000UNIT/M
     Route: 065
  10. PROAIR HFA [Concomitant]
     Active Substance: ALBUTEROL SULFATE
     Route: 055
     Dates: start: 2016
  11. OMEPRAZOLE. [Concomitant]
     Active Substance: OMEPRAZOLE
     Route: 065
  12. ESBRIET [Suspect]
     Active Substance: PIRFENIDONE
     Indication: IDIOPATHIC PULMONARY FIBROSIS
     Dosage: 1 TAB X 1 WEEK
     Route: 048
  13. ESBRIET [Suspect]
     Active Substance: PIRFENIDONE
     Dosage: 3 TABS WITH MEALS
     Route: 048
  14. OXYGEN. [Concomitant]
     Active Substance: OXYGEN
     Dosage: TWENTY-FOUR HOURS A DAY
     Route: 065
     Dates: start: 2012
  15. AMLODIPINE [Concomitant]
     Active Substance: AMLODIPINE BESYLATE
     Dosage: 10-20MG
     Route: 065
  16. SYMBICORT [Concomitant]
     Active Substance: BUDESONIDE\FORMOTEROL FUMARATE DIHYDRATE
     Dosage: TWO PUFFS TWICE A DAY
     Route: 055
  17. PREDNISONE. [Concomitant]
     Active Substance: PREDNISONE
     Indication: SARCOIDOSIS
     Route: 048
     Dates: start: 2011
  18. ALBUTEROL [SALBUTAMOL] [Concomitant]
     Active Substance: ALBUTEROL
     Dosage: 108
     Route: 065
  19. MELATONIN [Concomitant]
     Active Substance: MELATONIN
     Route: 065
  20. TRAMADOL. [Concomitant]
     Active Substance: TRAMADOL
     Route: 065
  21. IPRATROPIUM [Concomitant]
     Active Substance: IPRATROPIUM
     Dosage: 0.5-2.5
     Route: 065
  22. SPIRONOLACTONE. [Concomitant]
     Active Substance: SPIRONOLACTONE
     Route: 065
  23. ESBRIET [Suspect]
     Active Substance: PIRFENIDONE
     Dosage: NINE PILLS A DAY
     Route: 048
     Dates: start: 2017, end: 2017

REACTIONS (23)
  - Nausea [Recovered/Resolved]
  - Feeding disorder [Recovered/Resolved]
  - Pericardial effusion [Recovered/Resolved]
  - Malaise [Recovered/Resolved with Sequelae]
  - Chromaturia [Recovered/Resolved with Sequelae]
  - Pulmonary hypertension [Not Recovered/Not Resolved]
  - Dyspnoea [Not Recovered/Not Resolved]
  - Nausea [Recovered/Resolved with Sequelae]
  - Insomnia [Not Recovered/Not Resolved]
  - Pneumonia [Not Recovered/Not Resolved]
  - Insomnia [Recovering/Resolving]
  - Fatigue [Recovered/Resolved]
  - Insomnia [Recovered/Resolved]
  - Fatigue [Not Recovered/Not Resolved]
  - Chromaturia [Not Recovered/Not Resolved]
  - Dyspnoea [Recovered/Resolved]
  - Cough [Recovered/Resolved with Sequelae]
  - Decreased appetite [Not Recovered/Not Resolved]
  - Vomiting [Recovered/Resolved with Sequelae]
  - Thrombosis [Not Recovered/Not Resolved]
  - Sarcoidosis [Not Recovered/Not Resolved]
  - Abdominal discomfort [Recovered/Resolved with Sequelae]
  - Pleural effusion [Recovered/Resolved]

NARRATIVE: CASE EVENT DATE: 2017
